FAERS Safety Report 15948473 (Version 1)
Quarter: 2019Q1

REPORT INFORMATION
  Report Type: Spontaneous
  Country: US (occurrence: US)
  Receive Date: 20190211
  Receipt Date: 20190211
  Transmission Date: 20190417
  Serious: No
  Sender: FDA-Public Use
  Company Number: US-SUNOVION-2019SUN000349

PATIENT
  Age: 68 Year
  Sex: Male
  Weight: 92.97 kg

DRUGS (5)
  1. CBD OIL [Interacting]
     Active Substance: CANNABIDIOL\HERBALS
     Dosage: UNK
     Route: 065
  2. DEPAKOTE [Suspect]
     Active Substance: DIVALPROEX SODIUM
     Dosage: UNK
     Route: 065
  3. LATUDA [Suspect]
     Active Substance: LURASIDONE HYDROCHLORIDE
     Indication: AFFECTIVE DISORDER
     Dosage: 20 MG FOR ^A WHILE^
     Route: 048
     Dates: end: 20190121
  4. LITHIUM. [Interacting]
     Active Substance: LITHIUM
     Indication: AFFECTIVE DISORDER
     Dosage: 150 MG, QD
     Route: 048
  5. SEROQUEL [Interacting]
     Active Substance: QUETIAPINE FUMARATE
     Dosage: 15-20 MG FOR 15 YEARS
     Route: 065

REACTIONS (7)
  - Tardive dyskinesia [Not Recovered/Not Resolved]
  - Stress [Unknown]
  - Trismus [Not Recovered/Not Resolved]
  - Insomnia [Not Recovered/Not Resolved]
  - Drug interaction [Unknown]
  - Psychomotor hyperactivity [Not Recovered/Not Resolved]
  - Off label use [Unknown]

NARRATIVE: CASE EVENT DATE: 201901
